FAERS Safety Report 18642691 (Version 1)
Quarter: 2020Q4

REPORT INFORMATION
  Report Type: Spontaneous
  Country: US (occurrence: US)
  Receive Date: 20201219
  Receipt Date: 20201219
  Transmission Date: 20210114
  Serious: No
  Sender: FDA-Public Use
  Company Number: None

PATIENT
  Age: 70 Year
  Sex: Female
  Weight: 76.6 kg

DRUGS (11)
  1. LYRICA [Concomitant]
     Active Substance: PREGABALIN
  2. TAMOXIFEN [Concomitant]
     Active Substance: TAMOXIFEN
  3. ASPIRIN EC LOW DOSE [Concomitant]
  4. CALCIUM 500 + D [Concomitant]
     Active Substance: CALCIUM\VITAMIN D
  5. LIPITOR [Concomitant]
     Active Substance: ATORVASTATIN CALCIUM
  6. VITAMIN B-6 [Concomitant]
     Active Substance: PYRIDOXINE
  7. CAPECITABINE. [Suspect]
     Active Substance: CAPECITABINE
     Indication: BREAST CANCER
     Route: 048
     Dates: start: 20201120
  8. CENTRUM SILVER ADULT 50 [Concomitant]
  9. ATENOLOL. [Concomitant]
     Active Substance: ATENOLOL
  10. CITRACAL +D3 [Concomitant]
  11. VITAMIN D [Concomitant]
     Active Substance: VITAMIN D NOS

REACTIONS (1)
  - Diarrhoea [None]

NARRATIVE: CASE EVENT DATE: 20201217
